FAERS Safety Report 8987685 (Version 2)
Quarter: 2013Q1

REPORT INFORMATION
  Report Type: Spontaneous
  Country: PR (occurrence: PR)
  Receive Date: 20121227
  Receipt Date: 20130212
  Transmission Date: 20140127
  Serious: Yes (Hospitalization, Other)
  Sender: FDA-Public Use
  Company Number: PR-ABBOTT-12P-131-1025154-00

PATIENT
  Sex: Male
  Weight: 61.29 kg

DRUGS (3)
  1. HUMIRA [Suspect]
     Indication: CROHN^S DISEASE
     Route: 058
     Dates: start: 2007, end: 201208
  2. HUMIRA [Suspect]
     Route: 058
     Dates: start: 201208, end: 201212
  3. HUMIRA [Suspect]
     Route: 058
     Dates: start: 201212

REACTIONS (1)
  - Small intestinal obstruction [Recovered/Resolved]
